FAERS Safety Report 9784661 (Version 1)
Quarter: 2013Q4

REPORT INFORMATION
  Report Type: Spontaneous
  Country: JP (occurrence: JP)
  Receive Date: 20131226
  Receipt Date: 20131226
  Transmission Date: 20140711
  Serious: Yes (Other)
  Sender: FDA-Public Use
  Company Number: JP-WATSON-2013-23125

PATIENT
  Age: 5 Year
  Sex: Female

DRUGS (1)
  1. ENALAPRIL MALEATE (UNKNOWN) [Suspect]
     Indication: PRODUCT USED FOR UNKNOWN INDICATION
     Dosage: UNK
     Route: 065

REACTIONS (4)
  - Hyperuricaemia [Recovering/Resolving]
  - Gouty tophus [Recovering/Resolving]
  - Hand fracture [Unknown]
  - Renal impairment [Recovering/Resolving]
